FAERS Safety Report 8895736 (Version 1)
Quarter: 2012Q4

REPORT INFORMATION
  Report Type: 
  Country: CA (occurrence: CA)
  Receive Date: 20121108
  Receipt Date: 20121108
  Transmission Date: 20130627
  Serious: Yes (Other)
  Sender: FDA-Public Use
  Company Number: CA-ASTRAZENECA-2012SE83212

PATIENT
  Age: 65 Year
  Sex: Female
  Weight: 65.8 kg

DRUGS (5)
  1. NEXIUM [Suspect]
     Dosage: DAILY
     Route: 048
  2. CENTRUM SELECT NOS [Concomitant]
  3. MICARDIS [Concomitant]
  4. VITAMIN D [Concomitant]
  5. WILD SALMON OIL [Concomitant]

REACTIONS (9)
  - Cough [Recovered/Resolved]
  - Dysphonia [Recovered/Resolved]
  - Ear disorder [Recovered/Resolved]
  - Eye swelling [Recovered/Resolved]
  - Ocular hyperaemia [Recovered/Resolved]
  - Skin burning sensation [Recovered/Resolved]
  - Erythema [Recovered/Resolved]
  - Pruritus [Recovered/Resolved]
  - Urticaria [Recovered/Resolved]
